FAERS Safety Report 24317200 (Version 1)
Quarter: 2024Q3

REPORT INFORMATION
  Report Type: Spontaneous
  Country: GB (occurrence: GB)
  Receive Date: 20240913
  Receipt Date: 20240913
  Transmission Date: 20241017
  Serious: Yes (Other)
  Sender: TEVA
  Company Number: None

PATIENT
  Age: 37 Year

DRUGS (8)
  1. ESCITALOPRAM [Suspect]
     Active Substance: ESCITALOPRAM OXALATE
     Route: 065
  2. THIAMINE [Concomitant]
     Active Substance: THIAMINE
     Dosage: TIME INTERVAL: 0.33333333 DAYS
  3. ACAMPROSATE [Concomitant]
     Active Substance: ACAMPROSATE
     Dosage: TIME INTERVAL: 0.33333333 DAYS
     Route: 048
  4. CODEINE [Concomitant]
     Active Substance: CODEINE
  5. DOXAZOSIN [Concomitant]
     Active Substance: DOXAZOSIN MESYLATE
  6. Hydrocortisone/ Miconazole [Concomitant]
     Indication: Rash
     Dosage: APPLY TWICE A DAY AS DIRECTED, FOR 7-14 DAYS ACROSS RASH AREA 30 GRAM, HYDROCORTISONE 1% / MICONA...
  7. OMEPRAZOLE [Concomitant]
     Active Substance: OMEPRAZOLE
     Route: 048
  8. AMLODIPINE [Concomitant]
     Active Substance: AMLODIPINE BESYLATE

REACTIONS (1)
  - Serotonin syndrome [Unknown]
